FAERS Safety Report 22247246 (Version 1)
Quarter: 2023Q2

REPORT INFORMATION
  Report Type: Report from Study
  Country: CO (occurrence: CO)
  Receive Date: 20230424
  Receipt Date: 20230424
  Transmission Date: 20230722
  Serious: Yes (Other)
  Sender: FDA-Public Use
  Company Number: CO-ABBVIE-4739042

PATIENT
  Age: 18 Year
  Sex: Female

DRUGS (1)
  1. ZEMPLAR [Suspect]
     Active Substance: PARICALCITOL
     Indication: Chronic kidney disease
     Dosage: STRENGTH : 2 MICROGRAM
     Route: 048
     Dates: start: 20220331, end: 20230414

REACTIONS (3)
  - Post procedural haemorrhage [Recovered/Resolved]
  - Swelling face [Recovering/Resolving]
  - Postoperative thrombosis [Recovered/Resolved]

NARRATIVE: CASE EVENT DATE: 20230301
